FAERS Safety Report 20102675 (Version 3)
Quarter: 2022Q1

REPORT INFORMATION
  Report Type: Spontaneous
  Country: US (occurrence: US)
  Receive Date: 20211123
  Receipt Date: 20220203
  Transmission Date: 20220423
  Serious: Yes (Other)
  Sender: FDA-Public Use
  Company Number: US-PARI RESPIRATORY EQUIPMENT, INC.-2021PAR00063

PATIENT
  Sex: Male
  Weight: 45.351 kg

DRUGS (25)
  1. KITABIS PAK [Suspect]
     Active Substance: TOBRAMYCIN
     Indication: Cystic fibrosis
     Dosage: 300/5 MG/ML (1 AMPULE)  VIA NEBULIZER, 2X/DAY EVERY OTHER MONTH (ODD MONTHS ON, EVEN MONTHS OFF)
  2. PHENOBARBITAL [Concomitant]
     Active Substance: PHENOBARBITAL
     Dosage: UNK, 2X/DAY
  3. LAMICTAL [Concomitant]
     Active Substance: LAMOTRIGINE
     Dosage: UNK, 2X/DAY
  4. MIRALAX [Concomitant]
     Active Substance: POLYETHYLENE GLYCOL 3350
  5. NITROFURANTOIN [Concomitant]
     Active Substance: NITROFURANTOIN
     Dosage: UNK, 1X/DAY (NIGHTLY)
  6. POTASSIUM CITRATE [Concomitant]
     Active Substance: POTASSIUM CITRATE
     Dosage: UNK, 3X/DAY
  7. CALCIUM [Concomitant]
     Active Substance: CALCIUM
  8. MAGNESIUM CITRATE [Concomitant]
     Active Substance: MAGNESIUM CITRATE
  9. VITAMIN D3 [Concomitant]
     Active Substance: CHOLECALCIFEROL
  10. IRON [Concomitant]
     Active Substance: IRON
  11. BACLOFEN [Concomitant]
     Active Substance: BACLOFEN
     Dosage: 35 MG, 2X/DAY (IN THE MORNING AND NIGHT)
  12. BACLOFEN [Concomitant]
     Active Substance: BACLOFEN
     Dosage: 20 MG, 1X/DAY (DURING THE DAY)
  13. FLONASE [Concomitant]
     Active Substance: FLUTICASONE PROPIONATE
  14. TYLENOL [Concomitant]
     Active Substance: ACETAMINOPHEN
     Dosage: UNK, AS NEEDED
  15. SODIUM CHLORIDE [Concomitant]
     Active Substance: SODIUM CHLORIDE
     Dosage: 1 G, 1X/DAY
  16. ZYRTEC [Concomitant]
     Active Substance: CETIRIZINE HYDROCHLORIDE
  17. SUPERSTRENGTH CRANBERRY [Concomitant]
     Dosage: 500 MG, 1X/DAY
  18. VITAMIX RTF FORMULA [Concomitant]
  19. NEXIUM POWDER [Concomitant]
     Dosage: UNK, 2X/DAY
  20. PULMICORT TURBUHALER [Concomitant]
     Active Substance: BUDESONIDE
  21. ALBUTEROL [Concomitant]
     Active Substance: ALBUTEROL
  22. SODIUM CHLORIDE NEB [Concomitant]
  23. MAGNESIUM OXIDE [Concomitant]
     Active Substance: MAGNESIUM OXIDE
  24. LISINOPRIL [Concomitant]
     Active Substance: LISINOPRIL
  25. GLYCOLAX [Concomitant]
     Active Substance: POLYETHYLENE GLYCOL 3350

REACTIONS (6)
  - Pseudomonas infection [Unknown]
  - Dyspnoea [Unknown]
  - Wheezing [Unknown]
  - Increased bronchial secretion [Unknown]
  - Hypersomnia [Unknown]
  - Bacterial disease carrier [Unknown]

NARRATIVE: CASE EVENT DATE: 20210101
